FAERS Safety Report 17770939 (Version 1)
Quarter: 2020Q2

REPORT INFORMATION
  Report Type: Spontaneous
  Country: DE (occurrence: DE)
  Receive Date: 20200512
  Receipt Date: 20200512
  Transmission Date: 20200714
  Serious: Yes (Hospitalization)
  Sender: FDA-Public Use
  Company Number: DE-MYLANLABS-2020M1045619

PATIENT
  Age: 91 Year
  Sex: Male

DRUGS (19)
  1. CARBIMAZOL [Concomitant]
     Active Substance: CARBIMAZOLE
     Dosage: 10 MG, 3-0-0-0, TABLETTEN
     Route: 048
  2. ZOLPIDEM [Concomitant]
     Active Substance: ZOLPIDEM TARTRATE
     Dosage: 5 MG, 0-0-1-0, TABLETTEN
     Route: 048
  3. MOVICOL [Concomitant]
     Active Substance: POLYETHYLENE GLYCOL 3350\POTASSIUM CHLORIDE\SODIUM BICARBONATE\SODIUM CHLORIDE
     Dosage: NK MG, 1-0-0-0
     Route: 048
  4. ATARAX [Concomitant]
     Active Substance: HYDROXYZINE HYDROCHLORIDE
     Dosage: 25 MG, 0-0-1-0, TABLETTEN
     Route: 048
  5. FIASP [Concomitant]
     Active Substance: INSULIN ASPART
     Dosage: 14 IE, 1-1-1-0
     Route: 058
  6. ATORVASTATIN [Concomitant]
     Active Substance: ATORVASTATIN
     Dosage: 20 MG, 0-0-1-0, TABLETTEN
     Route: 048
  7. ZYLORIC [Concomitant]
     Active Substance: ALLOPURINOL
     Dosage: 300 MG, 0-0-0.5-0, TABLETTEN
     Route: 048
  8. CEFPODOXIME [Concomitant]
     Active Substance: CEFPODOXIME
     Dosage: 200 MG, 1-0-1-0, TABLETTEN
     Route: 048
  9. METOHEXAL                          /00376902/ [Concomitant]
     Active Substance: METOPROLOL SUCCINATE
     Dosage: 95 MG, 1-0-0-0, TABLETTEN
     Route: 048
  10. SPASMEX                            /00376202/ [Concomitant]
     Active Substance: TROSPIUM CHLORIDE
     Dosage: 15 MG, 1-0-1-0, TABLETTEN
     Route: 048
  11. SALBUTAMOL                         /00139502/ [Concomitant]
     Active Substance: ALBUTEROL SULFATE
     Dosage: 1.25 MG, 1-1-1-0
     Route: 055
  12. LANTUS [Concomitant]
     Active Substance: INSULIN GLARGINE
     Dosage: 40 IE, 0-0-1-0
     Route: 058
  13. TORASEMIDE [Suspect]
     Active Substance: TORSEMIDE
     Indication: PRODUCT USED FOR UNKNOWN INDICATION
     Dosage: 10 MG, 2-1-0-0, TABLETTEN
     Route: 048
  14. ASPIRIN. [Concomitant]
     Active Substance: ASPIRIN
     Dosage: 100 MG, 0-1-0-0, TABLETTEN
     Route: 048
  15. PENTAZOL [Concomitant]
     Dosage: 40 MG, 0-0-1-0, TABLETTEN
     Route: 048
  16. MAGNESIUM [Concomitant]
     Active Substance: MAGNESIUM
     Dosage: NK MG, BEI BEDARF, BRAUSETABLETTEN
     Route: 048
  17. PREDNISOLONE. [Suspect]
     Active Substance: PREDNISOLONE
     Indication: PRODUCT USED FOR UNKNOWN INDICATION
     Dosage: 2.5 MG, 0-0-1-0, TABLETTEN
     Route: 048
  18. XIPAMID [Suspect]
     Active Substance: XIPAMIDE
     Indication: PRODUCT USED FOR UNKNOWN INDICATION
     Dosage: 40 MG, 1-0-0-0, TABLETTEN
     Route: 048
  19. TIM-OPHTAL [Concomitant]
     Active Substance: TIMOLOL MALEATE
     Dosage: 0.25 MG, 1-0-1-0, TABLETTEN
     Route: 048

REACTIONS (1)
  - Renal impairment [Unknown]
